FAERS Safety Report 7519576-0 (Version None)
Quarter: 2011Q2

REPORT INFORMATION
  Report Type: 
  Country: None (occurrence: None)
  Receive Date: 20110602
  Receipt Date: 20110517
  Transmission Date: 20111010
  Serious: Yes (Hospitalization)
  Sender: FDA-Public Use
  Company Number: A0781135A

PATIENT
  Age: 67 Year
  Sex: Female

DRUGS (15)
  1. TENORMIN [Concomitant]
  2. PRILOSEC [Concomitant]
  3. AVANDIA [Suspect]
     Dosage: 8MG PER DAY
     Route: 048
     Dates: start: 19990901, end: 20051201
  4. LANTUS [Concomitant]
  5. ASPIRIN [Concomitant]
  6. LIPITOR [Concomitant]
  7. FISH OIL [Concomitant]
  8. NOVOLOG [Concomitant]
  9. AVANDARYL [Suspect]
     Route: 065
  10. NITROGLYCERIN [Concomitant]
  11. AVANDAMET [Suspect]
     Route: 065
  12. XALATAN [Concomitant]
  13. DIOVAN [Concomitant]
  14. QUININE SULFATE [Concomitant]
  15. SYNTHROID [Concomitant]

REACTIONS (2)
  - MYOCARDIAL INFARCTION [None]
  - MYOCARDIAL ISCHAEMIA [None]
